FAERS Safety Report 24783585 (Version 2)
Quarter: 2025Q1

REPORT INFORMATION
  Report Type: Report from Study
  Country: US (occurrence: US)
  Receive Date: 20241227
  Receipt Date: 20250203
  Transmission Date: 20250409
  Serious: Yes (Other)
  Sender: OTSUKA
  Company Number: US-OTSUKA-2024_034419

PATIENT
  Age: 40 Year
  Sex: Male

DRUGS (19)
  1. TOLVAPTAN [Suspect]
     Active Substance: TOLVAPTAN
     Indication: Congenital cystic kidney disease
     Dosage: 15 MG, QD (IN THE MORNING)
     Route: 048
     Dates: start: 20240717
  2. TOLVAPTAN [Suspect]
     Active Substance: TOLVAPTAN
     Dosage: 15 MG, QD (IN THE EVENING)
     Route: 048
  3. ZYLOPRIM [Concomitant]
     Active Substance: ALLOPURINOL
     Indication: Hyperuricaemia
     Dosage: 1 DF, QD (100MG)
     Route: 048
     Dates: start: 20230509
  4. NORVASC [Concomitant]
     Active Substance: AMLODIPINE BESYLATE
     Indication: Hypertension
     Dosage: 1 DF, QD (5 MG IN MORNING)
     Route: 048
     Dates: start: 20240319
  5. NORVASC [Concomitant]
     Active Substance: AMLODIPINE BESYLATE
     Dosage: 1 DF, QD (5 MG IN EVENING)
     Route: 048
     Dates: start: 20240319
  6. COREG [Concomitant]
     Active Substance: CARVEDILOL
     Indication: Product used for unknown indication
     Dosage: 1 DF, QD (25 MG IN MORNING)
     Route: 048
     Dates: start: 20231003, end: 20241002
  7. COREG [Concomitant]
     Active Substance: CARVEDILOL
     Dosage: 1 DF, QD (25 MG IN EVENING TAKE WITH MEALS)
     Route: 048
     Dates: start: 20231003, end: 20241002
  8. COREG [Concomitant]
     Active Substance: CARVEDILOL
     Dosage: 1.5 DF, QD (37.5 MG) (IN THE MORNING)
     Route: 048
     Dates: start: 20240319
  9. COREG [Concomitant]
     Active Substance: CARVEDILOL
     Dosage: 1.5 DF, QD (37.5 MG) (IN THE EVENING)
     Route: 048
     Dates: start: 20240319
  10. CHOLECALCIFEROL [Concomitant]
     Active Substance: CHOLECALCIFEROL
     Indication: Bone metabolism disorder
     Dosage: 5000 IU, QD
     Route: 048
  11. INSPRA [Concomitant]
     Active Substance: EPLERENONE
     Indication: Hypokalaemia
     Dosage: 0.5 DF, QD
     Route: 048
     Dates: start: 20240814
  12. FERROUS SULFATE [Concomitant]
     Active Substance: FERROUS SULFATE
     Indication: Product used for unknown indication
     Dosage: 1 DF, QD (WITH MEAL)
     Route: 048
     Dates: start: 20231211
  13. SYNTHROID [Concomitant]
     Active Substance: LEVOTHYROXINE SODIUM
     Indication: Product used for unknown indication
     Dosage: 1 DF, QD
     Route: 048
     Dates: start: 20240425
  14. RENVELA [Concomitant]
     Active Substance: SEVELAMER CARBONATE
     Indication: Hyperphosphataemia
     Dosage: 1 DF, QD (IN THE MORNING)
     Route: 048
     Dates: start: 20240807
  15. RENVELA [Concomitant]
     Active Substance: SEVELAMER CARBONATE
     Dosage: 1 DF, QD (IN THE EVENING)
     Route: 048
     Dates: start: 20240807
  16. SODIUM BICARBONATE [Concomitant]
     Active Substance: SODIUM BICARBONATE
     Indication: Acidosis
     Dosage: 1 DF, QD (IN THE MORNING)
     Route: 048
     Dates: start: 20240528
  17. SODIUM BICARBONATE [Concomitant]
     Active Substance: SODIUM BICARBONATE
     Dosage: 1 DF, QD (IN THE EVENING)
     Route: 048
     Dates: start: 20240528
  18. SODIUM BICARBONATE [Concomitant]
     Active Substance: SODIUM BICARBONATE
     Dosage: 1 DF, QD  (BEFORE BED TIME)
     Route: 048
     Dates: start: 20240730
  19. IRON [Concomitant]
     Active Substance: IRON
     Indication: Iron deficiency anaemia
     Dosage: UNK, QD
     Route: 065

REACTIONS (9)
  - Renal transplant [Unknown]
  - Eosinophil count decreased [Recovered/Resolved]
  - Monocyte count decreased [Not Recovered/Not Resolved]
  - Lymphocyte count decreased [Not Recovered/Not Resolved]
  - Mean cell haemoglobin concentration decreased [Recovered/Resolved]
  - Haematocrit decreased [Not Recovered/Not Resolved]
  - Red blood cell count decreased [Recovering/Resolving]
  - Haemoglobin decreased [Recovering/Resolving]
  - Underdose [Unknown]

NARRATIVE: CASE EVENT DATE: 20240717
